FAERS Safety Report 8364082-7 (Version None)
Quarter: 2012Q2

REPORT INFORMATION
  Report Type: 
  Country: None (occurrence: None)
  Receive Date: 20120516
  Receipt Date: 20120307
  Transmission Date: 20120825
  Serious: Yes (Hospitalization)
  Sender: FDA-Public Use
  Company Number: US-ALEXION-A201200277

PATIENT
  Sex: Female
  Weight: 16 kg

DRUGS (13)
  1. SOLIRIS [Suspect]
     Indication: HAEMOLYTIC URAEMIC SYNDROME
     Dosage: 300 MG, Q2W
     Route: 042
     Dates: start: 20111207
  2. QVAR 40 [Concomitant]
     Dosage: 2 PUFFS, BID
  3. SINGULAIR [Concomitant]
     Dosage: 4 MG, QD
     Route: 048
  4. CATAPRES [Concomitant]
     Dosage: 1 PATCH Q7DAYS
     Route: 062
  5. MEPRON [Concomitant]
     Dosage: 500 MG, QD
     Route: 048
  6. ALBUTEROL [Concomitant]
     Dosage: 2 PUFFS, Q4H PRN
  7. VENTOLIN HFA [Concomitant]
     Indication: WHEEZING
     Dosage: 2 PUFFS QH6 PRN
     Dates: start: 20120123
  8. NORVASC [Concomitant]
     Dosage: 2 MG, BID
     Route: 048
  9. PREVACID [Concomitant]
     Dosage: 15 MG, QD
     Route: 048
  10. CLONIDINE [Concomitant]
     Dosage: 0.3 ML, TID
     Route: 048
  11. MULTI-VITAMIN [Concomitant]
     Dosage: 1 TABLET, QD
     Route: 048
  12. VENTOLIN HFA [Concomitant]
     Indication: COUGH
  13. ENALAPRIL MALEATE [Concomitant]
     Dosage: 2 ML, QD
     Route: 048
     Dates: start: 20111231

REACTIONS (9)
  - LETHARGY [None]
  - DECREASED APPETITE [None]
  - URINE OUTPUT DECREASED [None]
  - PYREXIA [None]
  - DYSPHONIA [None]
  - HAEMATOCRIT ABNORMAL [None]
  - HAEMOGLOBIN ABNORMAL [None]
  - HYPOTENSION [None]
  - BLOOD GLUCOSE INCREASED [None]
